FAERS Safety Report 4987447-X (Version None)
Quarter: 2006Q2

REPORT INFORMATION
  Report Type: 
  Country: None (occurrence: None)
  Receive Date: 20060501
  Receipt Date: 20050913
  Transmission Date: 20061013
  Serious: Yes (Death, Hospitalization)
  Sender: FDA-Public Use
  Company Number: US-MERCK-0509USA01861

PATIENT
  Age: 71 Year
  Sex: Female
  Weight: 92 kg

DRUGS (9)
  1. VIOXX [Suspect]
     Indication: ARTHRITIS
     Route: 048
     Dates: start: 20011012, end: 20041221
  2. LISINOPRIL [Concomitant]
     Indication: HYPERTENSION
     Route: 048
  3. GLUCOTROL XL [Concomitant]
     Indication: DIABETES MELLITUS
     Route: 065
  4. AVANDIA [Concomitant]
     Route: 048
  5. METOPROLOL TARTRATE [Concomitant]
     Route: 048
  6. FERROUS SULFATE [Concomitant]
     Route: 048
  7. LEVOTHYROXINE SODIUM [Concomitant]
     Route: 048
  8. ASPIRIN [Concomitant]
     Route: 048
  9. PREVACID [Concomitant]
     Route: 048

REACTIONS (18)
  - ABASIA [None]
  - ANAEMIA [None]
  - ARTERIOSCLEROSIS [None]
  - ASTHENIA [None]
  - BACK PAIN [None]
  - CEREBROVASCULAR ACCIDENT [None]
  - CERVICAL SPINE FLATTENING [None]
  - CHRONIC OBSTRUCTIVE PULMONARY DISEASE [None]
  - DIABETES MELLITUS NON-INSULIN-DEPENDENT [None]
  - DILATATION ATRIAL [None]
  - EMOTIONAL DISORDER [None]
  - GENERAL SYMPTOM [None]
  - HYPOAESTHESIA [None]
  - INTERVERTEBRAL DISC DEGENERATION [None]
  - MYOCARDIAL INFARCTION [None]
  - NECK PAIN [None]
  - OSTEOARTHRITIS [None]
  - ROAD TRAFFIC ACCIDENT [None]
